FAERS Safety Report 5357480-7 (Version None)
Quarter: 2007Q2

REPORT INFORMATION
  Report Type: 
  Country: None (occurrence: None)
  Receive Date: 20070614
  Receipt Date: 20070608
  Transmission Date: 20071010
  Serious: Yes (Other)
  Sender: FDA-Public Use
  Company Number: FR-BRISTOL-MYERS SQUIBB COMPANY-13809538

PATIENT
  Age: 32 Year
  Sex: Male

DRUGS (3)
  1. BARACLUDE [Suspect]
     Indication: HEPATITIS B
     Route: 048
     Dates: start: 20061019
  2. CELLCEPT [Suspect]
     Indication: RENAL TRANSPLANT
     Dates: start: 20061212
  3. PROGRAF [Concomitant]
     Indication: RENAL TRANSPLANT
     Dates: start: 20041212

REACTIONS (3)
  - GINGIVAL BLEEDING [None]
  - HAEMOPTYSIS [None]
  - PANCREATITIS [None]
